FAERS Safety Report 21782778 (Version 2)
Quarter: 2022Q4

REPORT INFORMATION
  Report Type: Spontaneous
  Country: JP (occurrence: JP)
  Receive Date: 20221227
  Receipt Date: 20221230
  Transmission Date: 20230113
  Serious: Yes (Other)
  Sender: FDA-Public Use
  Company Number: JP-JNJFOC-20221250998

PATIENT
  Age: 33 Year
  Sex: Male
  Weight: 64 kg

DRUGS (4)
  1. RILPIVIRINE [Suspect]
     Active Substance: RILPIVIRINE
     Indication: Product used for unknown indication
     Dosage: DOSE UNKNOWN, RIGHT
     Route: 030
     Dates: start: 20221213
  2. VOCABRIA [Suspect]
     Active Substance: CABOTEGRAVIR SODIUM
     Indication: Product used for unknown indication
     Dosage: DOSE UNKNOWN, LEFT
     Route: 030
     Dates: start: 20221213
  3. ATOMOXETINE [Concomitant]
     Active Substance: ATOMOXETINE
     Indication: Attention deficit hyperactivity disorder
     Route: 048
  4. ZOLPIDEM TARTRATE [Concomitant]
     Active Substance: ZOLPIDEM TARTRATE
     Route: 048

REACTIONS (4)
  - Administration site pain [Recovering/Resolving]
  - Administration site inflammation [Recovered/Resolved]
  - Administration site mass [Recovered/Resolved]
  - Liver disorder [Not Recovered/Not Resolved]

NARRATIVE: CASE EVENT DATE: 20221213
